FAERS Safety Report 4311557-3 (Version None)
Quarter: 2004Q1

REPORT INFORMATION
  Report Type: 
  Country: None (occurrence: None)
  Receive Date: 20040303
  Receipt Date: 20040303
  Transmission Date: 20041129
  Serious: Yes (Hospitalization)
  Sender: FDA-Public Use
  Company Number: None

PATIENT
  Age: 40 Year
  Sex: Male

DRUGS (6)
  1. INDOMETHACIN [Suspect]
     Indication: GOUT
     Dosage: 50 MG TID ORAL
     Route: 048
  2. ATORVASTATIN [Concomitant]
  3. INDOMETHACIN [Concomitant]
  4. COLCHICINE [Concomitant]
  5. QUINAPRIL HCL [Concomitant]
  6. GLIPIZIDE [Concomitant]

REACTIONS (6)
  - DIZZINESS [None]
  - FAECAL OCCULT BLOOD POSITIVE [None]
  - GASTRIC ULCER [None]
  - TACHYCARDIA [None]
  - UPPER GASTROINTESTINAL HAEMORRHAGE [None]
  - VOMITING [None]
